FAERS Safety Report 17662551 (Version 10)
Quarter: 2025Q2

REPORT INFORMATION
  Report Type: Report from Study
  Country: US (occurrence: US)
  Receive Date: 20200413
  Receipt Date: 20250521
  Transmission Date: 20250717
  Serious: Yes (Other)
  Sender: TAKEDA
  Company Number: US-SHIRE-US202013164

PATIENT
  Sex: Female
  Weight: 94 kg

DRUGS (34)
  1. HUMAN IMMUNOGLOBULIN G\HYALURONIDASE RECOMBINANT HUMAN [Suspect]
     Active Substance: HUMAN IMMUNOGLOBULIN G\HYALURONIDASE (HUMAN RECOMBINANT)
     Indication: Immunodeficiency common variable
     Dosage: 30 GRAM, Q4WEEKS
     Dates: start: 20161130
  2. HUMAN IMMUNOGLOBULIN G\HYALURONIDASE RECOMBINANT HUMAN [Suspect]
     Active Substance: HUMAN IMMUNOGLOBULIN G\HYALURONIDASE (HUMAN RECOMBINANT)
     Indication: Primary immunodeficiency syndrome
     Dosage: 30 GRAM, MONTHLY
  3. HUMAN IMMUNOGLOBULIN G\HYALURONIDASE RECOMBINANT HUMAN [Suspect]
     Active Substance: HUMAN IMMUNOGLOBULIN G\HYALURONIDASE (HUMAN RECOMBINANT)
     Dosage: 40 GRAM, MONTHLY
  4. HUMAN IMMUNOGLOBULIN G\HYALURONIDASE RECOMBINANT HUMAN [Suspect]
     Active Substance: HUMAN IMMUNOGLOBULIN G\HYALURONIDASE (HUMAN RECOMBINANT)
     Dosage: 30 GRAM, MONTHLY
  5. COVID-19 VACCINE NOS [Suspect]
     Active Substance: COVID-19 VACCINE
     Indication: COVID-19 immunisation
  6. PNEUMOCOCCAL VACCINE POLYVALENT NOS [Suspect]
     Active Substance: PNEUMOCOCCAL VACCINE, POLYVALENT
     Indication: Product used for unknown indication
  7. ZYPREXA [Concomitant]
     Active Substance: OLANZAPINE
  8. ACETAMINOPHEN [Concomitant]
     Active Substance: ACETAMINOPHEN
  9. DIPHENHYDRAMINE [Concomitant]
     Active Substance: DIPHENHYDRAMINE
  10. LIDOCAINE [Concomitant]
     Active Substance: LIDOCAINE
  11. SODIUM CHLORIDE [Concomitant]
     Active Substance: SODIUM CHLORIDE
  12. JANUVIA [Concomitant]
     Active Substance: SITAGLIPTIN PHOSPHATE
  13. BENZONATATE [Concomitant]
     Active Substance: BENZONATATE
  14. CYANOCOBALAMIN\FOLIC ACID [Concomitant]
     Active Substance: CYANOCOBALAMIN\FOLIC ACID
  15. VITAMIN D3 [Concomitant]
     Active Substance: CHOLECALCIFEROL
  16. ASPIRIN [Concomitant]
     Active Substance: ASPIRIN
  17. PRAVASTATIN [Concomitant]
     Active Substance: PRAVASTATIN
  18. SPIRONOLACTONE [Concomitant]
     Active Substance: SPIRONOLACTONE
  19. AMLODIPINE [Concomitant]
     Active Substance: AMLODIPINE BESYLATE
  20. CARDURA [Concomitant]
     Active Substance: DOXAZOSIN MESYLATE
  21. LAMOTRIGINE [Concomitant]
     Active Substance: LAMOTRIGINE
  22. ALPRAZOLAM [Concomitant]
     Active Substance: ALPRAZOLAM
  23. ALBUTEROL SULFATE [Concomitant]
     Active Substance: ALBUTEROL SULFATE
  24. BREO ELLIPTA [Concomitant]
     Active Substance: FLUTICASONE FUROATE\VILANTEROL TRIFENATATE
  25. EPINEPHRINE [Concomitant]
     Active Substance: EPINEPHRINE
  26. ASPIRIN [Concomitant]
     Active Substance: ASPIRIN
  27. VITAMIN D2 [Concomitant]
     Active Substance: ERGOCALCIFEROL
  28. Neomycin/polymyxin/hydrocortisone aidarex [Concomitant]
  29. FLONASE [Concomitant]
     Active Substance: FLUTICASONE PROPIONATE
  30. TRELEGY ELLIPTA [Concomitant]
     Active Substance: FLUTICASONE FUROATE\UMECLIDINIUM BROMIDE\VILANTEROL TRIFENATATE
  31. LEVEMIR [Concomitant]
     Active Substance: INSULIN DETEMIR
  32. GUANFACINE [Concomitant]
     Active Substance: GUANFACINE
  33. ATROVENT [Concomitant]
     Active Substance: IPRATROPIUM BROMIDE
  34. FLUBLOK [Concomitant]
     Active Substance: INFLUENZA A VIRUS A/CALIFORNIA/7/2009 (H1N1) RECOMBINANT HEMAGGLUTININ ANTIGEN\INFLUENZA A VIRUS A/V

REACTIONS (22)
  - Clostridium difficile infection [Unknown]
  - Cataract [Recovered/Resolved]
  - Sinus polyp [Unknown]
  - Respiratory symptom [Unknown]
  - Oxygen saturation abnormal [Unknown]
  - Heart rate abnormal [Unknown]
  - Cough [Recovering/Resolving]
  - Chronic sinusitis [Unknown]
  - Bronchitis [Unknown]
  - Sinusitis [Not Recovered/Not Resolved]
  - Product dose omission issue [Unknown]
  - Depression [Unknown]
  - Fall [Unknown]
  - Arthropathy [Unknown]
  - Arthritis [Unknown]
  - Viral infection [Unknown]
  - Eye disorder [Recovering/Resolving]
  - Pharyngitis streptococcal [Not Recovered/Not Resolved]
  - Asthma [Unknown]
  - Pain in extremity [Unknown]
  - Diarrhoea [Unknown]
  - Headache [Unknown]
